FAERS Safety Report 12383270 (Version 1)
Quarter: 2016Q2

REPORT INFORMATION
  Report Type: Spontaneous
  Country: US (occurrence: US)
  Receive Date: 20160518
  Receipt Date: 20160518
  Transmission Date: 20160815
  Serious: No
  Sender: FDA-Public Use
  Company Number: US-PFIZER INC-2016260100

PATIENT
  Age: 61 Year
  Sex: Female
  Weight: 54.42 kg

DRUGS (1)
  1. REVATIO [Suspect]
     Active Substance: SILDENAFIL CITRATE
     Indication: FLUID RETENTION
     Dosage: UNK, 3X/DAY

REACTIONS (3)
  - Hypotension [Unknown]
  - Condition aggravated [Unknown]
  - Product use issue [Unknown]

NARRATIVE: CASE EVENT DATE: 20160512
